FAERS Safety Report 7253525-8 (Version None)
Quarter: 2011Q1

REPORT INFORMATION
  Report Type: 
  Country: None (occurrence: None)
  Receive Date: 20110129
  Receipt Date: 20100211
  Transmission Date: 20110831
  Serious: No
  Sender: FDA-Public Use
  Company Number: US-ABBOTT-10P-163-0626455-00

PATIENT
  Sex: Female
  Weight: 76.272 kg

DRUGS (10)
  1. BENICAR [Concomitant]
     Indication: HYPERTENSION
     Dosage: 40/12.5, ONCE DAILY
  2. HUMIRA [Suspect]
     Indication: CROHN'S DISEASE
     Route: 058
     Dates: start: 20091218
  3. NEXIUM [Concomitant]
     Indication: GASTRIC DISORDER
  4. ELMERON [Concomitant]
     Indication: CYSTITIS INTERSTITIAL
     Dates: start: 20060101
  5. ACTONEL [Concomitant]
     Indication: BONE DISORDER
  6. AMITRIPTYLINE HCL [Concomitant]
     Indication: CYSTITIS INTERSTITIAL
  7. NORVASC [Concomitant]
     Indication: HYPERTENSION
  8. VIT D [Concomitant]
     Indication: PRODUCT USED FOR UNKNOWN INDICATION
  9. PREMARIN [Concomitant]
     Indication: PRODUCT USED FOR UNKNOWN INDICATION
  10. CALCIUM W/VITAMIN D [Concomitant]
     Indication: PRODUCT USED FOR UNKNOWN INDICATION

REACTIONS (2)
  - ORAL PAIN [None]
  - OROPHARYNGEAL BLISTERING [None]
